FAERS Safety Report 15701313 (Version 2)
Quarter: 2019Q1

REPORT INFORMATION
  Report Type: Spontaneous
  Country: PT (occurrence: PT)
  Receive Date: 20181207
  Receipt Date: 20190314
  Transmission Date: 20190417
  Serious: Yes (Disabling)
  Sender: FDA-Public Use
  Company Number: PT-009507513-1811PRT009679

PATIENT
  Age: 58 Year
  Sex: Female

DRUGS (1)
  1. ADROVANCE [Suspect]
     Active Substance: ALENDRONATE SODIUM\CHOLECALCIFEROL
     Dosage: UNK, STRENGTH: 5600 (UNITS UNSPECIFIED), STARTED IN JUNE 30
     Route: 048

REACTIONS (4)
  - Arthralgia [Recovering/Resolving]
  - Goitre [Unknown]
  - Insomnia [Unknown]
  - Synovial cyst [Unknown]
